FAERS Safety Report 4401027-6 (Version None)
Quarter: 2004Q3

REPORT INFORMATION
  Report Type: 
  Country: None (occurrence: None)
  Receive Date: 20040907
  Receipt Date: 20030925
  Transmission Date: 20050211
  Serious: No
  Sender: FDA-Public Use
  Company Number: US-BRISTOL-MYERS SQUIBB COMPANY-12393708

PATIENT
  Age: 50 Year
  Sex: Female
  Weight: 63 kg

DRUGS (1)
  1. COUMADIN [Suspect]
     Indication: THROMBOSIS
     Dosage: DOSE VARIES. INITIATED 10-15MG/DAY.  ^APPROX.^ 6/10/03: 7.5MG X 6DAYS/WK + 10MG X 1 DAY/WK.
     Route: 048
     Dates: start: 20030601

REACTIONS (2)
  - ALOPECIA [None]
  - INTERNATIONAL NORMALISED RATIO INCREASED [None]
